FAERS Safety Report 6593657-0 (Version None)
Quarter: 2010Q1

REPORT INFORMATION
  Report Type: 
  Country: None (occurrence: None)
  Receive Date: 20100222
  Receipt Date: 20091006
  Transmission Date: 20100710
  Serious: Yes (Other)
  Sender: FDA-Public Use
  Company Number: US-BRISTOL-MYERS SQUIBB COMPANY-14808349

PATIENT

DRUGS (1)
  1. ORENCIA [Suspect]

REACTIONS (1)
  - SKIN CANCER [None]
